FAERS Safety Report 8210278-4 (Version None)
Quarter: 2012Q1

REPORT INFORMATION
  Report Type: 
  Country: None (occurrence: None)
  Receive Date: 20120314
  Receipt Date: 20110322
  Transmission Date: 20120608
  Serious: Yes (Hospitalization)
  Sender: FDA-Public Use
  Company Number: US-ASTRAZENECA-2011SE16657

PATIENT
  Sex: Male

DRUGS (5)
  1. FLOMAX [Concomitant]
  2. ZOCOR [Concomitant]
  3. ASPIRIN [Concomitant]
  4. TOPROL-XL [Suspect]
     Route: 048
  5. CARDIZEM CD [Concomitant]

REACTIONS (4)
  - PALPITATIONS [None]
  - ANGINA PECTORIS [None]
  - DYSPNOEA [None]
  - HYPERTENSION [None]
